FAERS Safety Report 8329307 (Version 10)
Quarter: 2012Q4

REPORT INFORMATION
  Report Type: 
  Country: US (occurrence: US)
  Receive Date: 20120110
  Receipt Date: 20120927
  Transmission Date: 20130627
  Serious: Yes (Other)
  Sender: FDA-Public Use
  Company Number: US-PFIZER INC-2012000507

PATIENT
  Age: 50 Year
  Sex: Female
  Weight: 54.42 kg

DRUGS (17)
  1. CHANTIX [Suspect]
     Indication: SMOKING CESSATION THERAPY
     Dosage: 0.5 mg, daily
     Route: 048
     Dates: start: 201112, end: 201112
  2. CHANTIX [Suspect]
     Dosage: UNK
     Route: 048
     Dates: start: 201112, end: 20111221
  3. CHANTIX [Suspect]
     Dosage: 0.5 mg, 1x/day
     Route: 048
     Dates: start: 20111221, end: 201201
  4. CHANTIX [Suspect]
     Dosage: UNK
     Route: 048
     Dates: start: 201201, end: 201201
  5. CHANTIX [Suspect]
     Dosage: 1 mg, 2x/day
     Route: 048
     Dates: start: 201201, end: 201201
  6. CHANTIX [Suspect]
     Dosage: UNK, 2x/day
     Route: 048
     Dates: start: 201201, end: 201201
  7. CHANTIX [Suspect]
     Dosage: UNK
     Route: 048
     Dates: start: 201201, end: 20120202
  8. VICODIN [Concomitant]
     Dosage: UNK, 3x/day
  9. DIAZEPAM [Concomitant]
     Dosage: UNK
  10. TEMAZEPAM [Concomitant]
     Indication: SLEEP DISORDER
     Dosage: UNK
  11. KEPPRA [Concomitant]
     Indication: EPILEPSY
     Dosage: 500 mg, UNK
  12. KEPPRA [Concomitant]
     Indication: CONFUSIONAL STATE
  13. KEPPRA [Concomitant]
     Indication: CONVULSION
  14. CLONAZEPAM [Concomitant]
     Indication: INSOMNIA
     Dosage: UNK, once at night
  15. SOMA [Concomitant]
     Indication: FIBROMYALGIA
     Dosage: UNK
  16. SOMA [Concomitant]
     Indication: MUSCLE RELAXANT THERAPY
  17. VALIUM [Concomitant]
     Dosage: UNK

REACTIONS (31)
  - Anxiety [Recovering/Resolving]
  - Depression [Recovered/Resolved]
  - Agitation [Recovering/Resolving]
  - Anger [Not Recovered/Not Resolved]
  - Paranoia [Unknown]
  - Fibromyalgia [Unknown]
  - Epilepsy [Unknown]
  - Tuberculosis [Unknown]
  - Convulsion [Unknown]
  - Aggression [Recovering/Resolving]
  - Aphonia [Unknown]
  - Dysphonia [Unknown]
  - Cough [Unknown]
  - Emotional disorder [Not Recovered/Not Resolved]
  - Flatulence [Not Recovered/Not Resolved]
  - Pain [Recovered/Resolved]
  - Abnormal dreams [Recovered/Resolved]
  - Stress [Unknown]
  - Hypotension [Unknown]
  - Tooth fracture [Unknown]
  - Fall [Unknown]
  - Loose tooth [Unknown]
  - Infection [Unknown]
  - Pain in jaw [Unknown]
  - Headache [Unknown]
  - Insomnia [Unknown]
  - Feeling abnormal [Unknown]
  - Nightmare [Recovered/Resolved]
  - Fatigue [Unknown]
  - Decreased appetite [Unknown]
  - Blood cholesterol increased [Unknown]
